FAERS Safety Report 8771758 (Version 2)
Quarter: 2015Q1

REPORT INFORMATION
  Report Type: Spontaneous
  Country: US (occurrence: US)
  Receive Date: 20120905
  Receipt Date: 20150130
  Transmission Date: 20150721
  Serious: Yes (Hospitalization, Other)
  Sender: FDA-Public Use
  Company Number: US-CELGENEUS-163-21880-12080704

PATIENT
  Sex: Female
  Weight: 49.94 kg

DRUGS (14)
  1. REVLIMID [Suspect]
     Active Substance: LENALIDOMIDE
     Indication: PLASMA CELL MYELOMA
     Route: 048
     Dates: start: 20120111
  2. REVLIMID [Suspect]
     Active Substance: LENALIDOMIDE
     Route: 048
     Dates: start: 201312
  3. XARELTO [Concomitant]
     Active Substance: RIVAROXABAN
     Indication: ATRIAL FIBRILLATION
     Route: 065
  4. DEXAMETHASONE. [Concomitant]
     Active Substance: DEXAMETHASONE
     Indication: PLASMA CELL MYELOMA
     Route: 065
  5. ADVIL [Concomitant]
     Active Substance: IBUPROFEN
     Indication: PRODUCT USED FOR UNKNOWN INDICATION
     Route: 065
  6. AMOX TR-POTASSIUM [Concomitant]
     Indication: PRODUCT USED FOR UNKNOWN INDICATION
     Route: 065
  7. MULTAQ [Concomitant]
     Active Substance: DRONEDARONE
     Indication: PRODUCT USED FOR UNKNOWN INDICATION
     Route: 065
  8. IRON [Concomitant]
     Active Substance: IRON
     Indication: SUPPLEMENTATION THERAPY
     Route: 048
  9. XARELTO [Concomitant]
     Active Substance: RIVAROXABAN
     Route: 065
     Dates: start: 201405
  10. IRON [Concomitant]
     Active Substance: IRON
     Indication: BLOOD IRON DECREASED
  11. PRILOSEC [Concomitant]
     Active Substance: OMEPRAZOLE MAGNESIUM
     Indication: PRODUCT USED FOR UNKNOWN INDICATION
     Route: 065
  12. POTASSIUM [Concomitant]
     Active Substance: POTASSIUM
     Indication: PRODUCT USED FOR UNKNOWN INDICATION
     Route: 065
  13. ASPIRIN. [Concomitant]
     Active Substance: ASPIRIN
     Indication: PRODUCT USED FOR UNKNOWN INDICATION
     Route: 065
  14. ZOLPIDEM [Concomitant]
     Active Substance: ZOLPIDEM\ZOLPIDEM TARTRATE
     Indication: PRODUCT USED FOR UNKNOWN INDICATION
     Route: 065

REACTIONS (3)
  - Fall [Unknown]
  - Heart rate irregular [Unknown]
  - Spinal column injury [Unknown]
